FAERS Safety Report 9677737 (Version 2)
Quarter: 2013Q4

REPORT INFORMATION
  Report Type: Spontaneous
  Country: FR (occurrence: FR)
  Receive Date: 20131108
  Receipt Date: 20131120
  Transmission Date: 20140711
  Serious: Yes (Other)
  Sender: FDA-Public Use
  Company Number: FR-JNJFOC-20131017601

PATIENT
  Age: 64 Year
  Sex: Female

DRUGS (3)
  1. DOXORUBICIN HYDROCHLORIDE (CAELYX) [Suspect]
     Indication: OVARIAN CANCER
     Dosage: TOTALLY 3 COURSES
     Route: 042
     Dates: start: 20130122
  2. DOXORUBICIN HYDROCHLORIDE (CAELYX) [Suspect]
     Indication: OVARIAN CANCER
     Dosage: TOTALLY 3 COURSES
     Route: 042
     Dates: start: 20130211
  3. DOXORUBICIN HYDROCHLORIDE (CAELYX) [Suspect]
     Indication: OVARIAN CANCER
     Dosage: TOTALLY 3 COURSES
     Route: 042
     Dates: start: 20121227

REACTIONS (5)
  - Skin exfoliation [Recovered/Resolved]
  - Skin burning sensation [Recovered/Resolved]
  - Skin hyperpigmentation [Recovering/Resolving]
  - Skin ulcer [Recovered/Resolved]
  - Aphthous stomatitis [Unknown]
